FAERS Safety Report 4351517-X (Version None)
Quarter: 2004Q2

REPORT INFORMATION
  Report Type: 
  Country: None (occurrence: None)
  Receive Date: 20040430
  Receipt Date: 20040430
  Transmission Date: 20050107
  Serious: Yes (Death, Life-Threatening, Hospitalization)
  Sender: FDA-Public Use
  Company Number: None

PATIENT
  Sex: Male
  Weight: 77.2 kg

DRUGS (2)
  1. GLEEVEC [Suspect]
     Dosage: 300 MG (PO) DAYS 1-14
     Route: 048
     Dates: start: 20040416
  2. GEMCITABINE 700 MG /M2 [Suspect]
     Dosage: 700 MG/M2 (IV) DAYS 1 + 8
     Route: 042
     Dates: start: 20040416

REACTIONS (4)
  - BLOOD PRESSURE DECREASED [None]
  - GENERAL PHYSICAL HEALTH DETERIORATION [None]
  - PLEURAL EFFUSION [None]
  - PNEUMOTHORAX [None]
